FAERS Safety Report 5124240-1 (Version None)
Quarter: 2006Q4

REPORT INFORMATION
  Report Type: 
  Country: None (occurrence: None)
  Receive Date: 20061010
  Receipt Date: 20060906
  Transmission Date: 20070319
  Serious: Yes (Other)
  Sender: FDA-Public Use
  Company Number: GB-BRISTOL-MYERS SQUIBB COMPANY-13502588

PATIENT
  Age: 43 Year
  Sex: Male
  Weight: 73 kg

DRUGS (1)
  1. APROVEL [Suspect]
     Indication: HYPERTENSION
     Dosage: DURATION: 2 YEARS
     Dates: start: 20040101

REACTIONS (1)
  - SPERMATOZOA MORPHOLOGY ABNORMAL [None]
